FAERS Safety Report 16056107 (Version 1)
Quarter: 2019Q1

REPORT INFORMATION
  Report Type: Spontaneous
  Country: US (occurrence: US)
  Receive Date: 20190311
  Receipt Date: 20190311
  Transmission Date: 20190418
  Serious: Yes (Other)
  Sender: FDA-Public Use
  Company Number: US-AUROBINDO-AUR-APL-2019-012413

PATIENT

DRUGS (3)
  1. ZOLEDRONIC ACID INJECTION [Suspect]
     Active Substance: ZOLEDRONIC ACID
     Indication: OSTEOPOROSIS
     Dosage: 1 DOSAGE FORM IN TOTAL
     Route: 065
  2. BELIMUMAB [Concomitant]
     Active Substance: BELIMUMAB
     Indication: IMMUNOSUPPRESSANT DRUG THERAPY
     Dosage: 120 MG/1.5 ML, SYSTEMIC (EVERY MONTH)
     Route: 065
  3. CICLOSPORIN [Concomitant]
     Active Substance: CYCLOSPORINE
     Indication: IMMUNOSUPPRESSANT DRUG THERAPY
     Dosage: 75 MILLIGRAM, DAILY (1 MG/KG, SYSTEMIC)
     Route: 065

REACTIONS (2)
  - Vitreous detachment [Recovered/Resolved]
  - Parophthalmia [Recovered/Resolved]
